FAERS Safety Report 8825347 (Version 1)
Quarter: 2012Q4

REPORT INFORMATION
  Report Type: 
  Country: US (occurrence: US)
  Receive Date: 20121004
  Receipt Date: 20121004
  Transmission Date: 20130627
  Serious: Yes (Hospitalization)
  Sender: FDA-Public Use
  Company Number: US-VERTEX PHARMACEUTICAL INC.-2012-022077

PATIENT
  Age: 52 Year
  Sex: Male
  Weight: 93 kg

DRUGS (9)
  1. VX-950 [Suspect]
     Indication: HEPATITIS C
     Dosage: 750 mg, tid
     Route: 048
     Dates: start: 20120324, end: 20120602
  2. CLONAZEPAM [Concomitant]
  3. CRESTOR [Concomitant]
  4. LISINOPRIL [Concomitant]
  5. MS CONTIN [Concomitant]
  6. PROAIR HFA [Concomitant]
  7. PROTONIX [Concomitant]
  8. SPIRIVA HFA AER [Concomitant]
  9. VITAMIN D /00107901/ [Concomitant]

REACTIONS (3)
  - Pneumonia [Unknown]
  - Dehydration [Unknown]
  - Weight decreased [Unknown]
